FAERS Safety Report 11926195 (Version 5)
Quarter: 2016Q1

REPORT INFORMATION
  Report Type: Spontaneous
  Country: US (occurrence: US)
  Receive Date: 20160119
  Receipt Date: 20160318
  Transmission Date: 20160526
  Serious: Yes (Life-Threatening, Hospitalization, Other)
  Sender: FDA-Public Use
  Company Number: US-SUN PHARMACEUTICAL INDUSTRIES LTD-2016US-109633

PATIENT
  Age: 61 Year
  Sex: Female

DRUGS (5)
  1. AMLODIPINE [Suspect]
     Active Substance: AMLODIPINE BESYLATE
     Indication: HYPERTENSION
     Dosage: 10 MG, QD
     Route: 048
  2. CAPTOPRIL. [Suspect]
     Active Substance: CAPTOPRIL
     Indication: HYPERTENSION
     Dosage: UNK
     Route: 065
  3. AMLODIPINE/BENAZEPRIL [Suspect]
     Active Substance: AMLODIPINE BESYLATE\BENAZEPRIL HYDROCHLORIDE
     Indication: HYPERTENSION
     Dosage: UNK
     Route: 048
  4. HYDROCHLOROTHIAZIDE/TRIAMTERENE [Suspect]
     Active Substance: HYDROCHLOROTHIAZIDE\TRIAMTERENE
     Indication: HYPERTENSION
     Dosage: UNK
     Route: 048
  5. PRAZOSIN [Suspect]
     Active Substance: PRAZOSIN
     Indication: HYPERTENSION
     Dosage: 5 MG, BID
     Route: 048

REACTIONS (6)
  - Posterior reversible encephalopathy syndrome [Recovered/Resolved]
  - Acute kidney injury [Recovered/Resolved]
  - Drug withdrawal syndrome [Unknown]
  - Hypertensive emergency [Recovering/Resolving]
  - Hypotension [Unknown]
  - Withdrawal hypertension [Recovering/Resolving]
